FAERS Safety Report 6710791-2 (Version None)
Quarter: 2010Q2

REPORT INFORMATION
  Report Type: 
  Country: None (occurrence: None)
  Receive Date: 20100505
  Receipt Date: 20100426
  Transmission Date: 20101027
  Serious: Yes (Hospitalization)
  Sender: FDA-Public Use
  Company Number: US-BIOGENIDEC-2010BI012587

PATIENT
  Age: 39 Year
  Sex: Female
  Weight: 63 kg

DRUGS (18)
  1. TYSABRI [Suspect]
     Indication: MULTIPLE SCLEROSIS
     Route: 042
     Dates: start: 20091103
  2. LYRICA [Concomitant]
     Route: 048
  3. LYRICA [Concomitant]
     Route: 048
  4. AMBIEN [Concomitant]
     Route: 048
  5. XANAX [Concomitant]
     Route: 048
  6. PREMPRO [Concomitant]
     Route: 048
  7. TOPROL-XL [Concomitant]
     Route: 048
  8. TOPROL-XL [Concomitant]
     Route: 048
  9. HYDROCODONE BITARTRATE [Concomitant]
     Route: 048
  10. HYDROCODONE BITARTRATE [Concomitant]
     Route: 048
  11. ACETAMINOPHEN [Concomitant]
     Route: 048
  12. FLINSTONE MULTIVITAMIN [Concomitant]
  13. FISH OIL [Concomitant]
     Route: 048
  14. IBUPROFEN [Concomitant]
     Route: 048
  15. EFFEXOR XR [Concomitant]
     Route: 048
  16. EFFEXOR XR [Concomitant]
     Route: 048
  17. VITAMIN D [Concomitant]
  18. CYANOCOBALAMIN [Concomitant]
     Route: 048

REACTIONS (9)
  - CONFUSIONAL STATE [None]
  - DEPRESSED LEVEL OF CONSCIOUSNESS [None]
  - DIARRHOEA [None]
  - DYSPNOEA [None]
  - FALL [None]
  - FATIGUE [None]
  - MEMORY IMPAIRMENT [None]
  - POST-TRAUMATIC HEADACHE [None]
  - SYNCOPE [None]
